FAERS Safety Report 25456004 (Version 2)
Quarter: 2025Q3

REPORT INFORMATION
  Report Type: Spontaneous
  Country: NZ (occurrence: NZ)
  Receive Date: 20250619
  Receipt Date: 20250709
  Transmission Date: 20251020
  Serious: Yes (Death, Other)
  Sender: ABBVIE
  Company Number: NZ-PFIZER INC-PV202500071534

PATIENT

DRUGS (1)
  1. CEFTAROLINE FOSAMIL [Suspect]
     Active Substance: CEFTAROLINE FOSAMIL
     Indication: Product used for unknown indication
     Route: 042

REACTIONS (1)
  - Death [Fatal]
